FAERS Safety Report 21897954 (Version 1)
Quarter: 2023Q1

REPORT INFORMATION
  Report Type: Report from Study
  Country: JP (occurrence: JP)
  Receive Date: 20230123
  Receipt Date: 20230123
  Transmission Date: 20230417
  Serious: Yes (Hospitalization)
  Sender: FDA-Public Use
  Company Number: JP-ORPHANEU-2020000403

PATIENT

DRUGS (27)
  1. CYSTADANE [Suspect]
     Active Substance: BETAINE
     Indication: Homocystinuria
     Dosage: 0.65 GRAM DAILY , BID
     Route: 048
     Dates: start: 20151222, end: 20160125
  2. CYSTADANE [Suspect]
     Active Substance: BETAINE
     Dosage: 0.75 GRAM DAILY, BID
     Route: 048
     Dates: start: 20160126, end: 20160222
  3. CYSTADANE [Suspect]
     Active Substance: BETAINE
     Dosage: 1 GRAM DAILY, BID
     Route: 048
     Dates: start: 20160223, end: 20161003
  4. CYSTADANE [Suspect]
     Active Substance: BETAINE
     Dosage: 1.5 GRAM DAILY, BID
     Route: 048
     Dates: start: 20161004, end: 20200217
  5. CYSTADANE [Suspect]
     Active Substance: BETAINE
     Dosage: 2 GRAM DAILY, BID
     Route: 048
     Dates: start: 20200218
  6. ELCARTIN [Concomitant]
     Indication: Homocystinuria
     Dosage: 15 ML DAILY DIVIDED IN THREE, TID
     Route: 048
     Dates: end: 20171102
  7. FRESMIN S [HYDROXOCOBALAMIN ACETATE] [Concomitant]
     Indication: Homocystinuria
     Dosage: 1000 MICROGRAM, QD (BEFORE THE START OF CYSTADANE)
     Route: 058
  8. BIOTIN [Concomitant]
     Active Substance: BIOTIN
     Indication: Product used for unknown indication
     Dosage: 0.1 MG ONCE DAILY
     Route: 048
     Dates: start: 20151228
  9. LAC-B GRANULAR POWDER N [Concomitant]
     Indication: Disease complication
     Dosage: 1.5 GRAM, TID (BEFORE START OF CYSTADANE)
     Route: 048
     Dates: end: 20170711
  10. LAC-B GRANULAR POWDER N [Concomitant]
     Dosage: 1 GRAM, TID
     Route: 048
     Dates: start: 20170131, end: 20170214
  11. LAC-B GRANULAR POWDER N [Concomitant]
     Dosage: 1 GRAM, TID
     Route: 048
     Dates: start: 20170604, end: 20170621
  12. LEVOCARNITINE HYDROCHLORIDE [Concomitant]
     Active Substance: LEVOCARNITINE HYDROCHLORIDE
     Indication: Product used for unknown indication
     Dosage: 750 MILLIGRAM, TID (BEFORE THE START OF CYSTADANE)
     Route: 048
  13. TEGRETOL [Concomitant]
     Active Substance: CARBAMAZEPINE
     Indication: Product used for unknown indication
     Dosage: 25 MILLIGRAM, BID (BEFORE THE START OF CYSTADANE)
     Route: 048
  14. TEGRETOL [Concomitant]
     Active Substance: CARBAMAZEPINE
     Indication: Disease complication
     Dosage: 40 MILLIGRAM, BID (BEFORE THE START OF CYSTADANE)
     Route: 048
     Dates: end: 20160716
  15. TEGRETOL [Concomitant]
     Active Substance: CARBAMAZEPINE
     Dosage: 30 MILLIGRAM, BID
     Route: 048
     Dates: start: 20160717, end: 20160914
  16. TEGRETOL [Concomitant]
     Active Substance: CARBAMAZEPINE
     Dosage: 20 MILLIGRAM, BID
     Route: 048
     Dates: start: 20160915
  17. TEGRETOL [Concomitant]
     Active Substance: CARBAMAZEPINE
     Dosage: 10 MILLIGRAM, QD
     Route: 048
     Dates: start: 20170130, end: 20170208
  18. LEVOCARNITINE [Concomitant]
     Active Substance: LEVOCARNITINE
     Indication: Product used for unknown indication
     Dosage: 7.5 MILLILITER, TID (BEFORE THE START OF CYSTADANE)
     Route: 048
  19. LEVOCARNITINE [Concomitant]
     Active Substance: LEVOCARNITINE
     Dosage: 10 MILLILITER, TID
     Route: 048
     Dates: start: 20160712, end: 20160914
  20. LEVOCARNITINE [Concomitant]
     Active Substance: LEVOCARNITINE
     Dosage: 15 MILLILITER, TID
     Route: 048
     Dates: start: 20160915, end: 20161220
  21. LEVOCARNITINE [Concomitant]
     Active Substance: LEVOCARNITINE
     Dosage: 5 MILLILITER, QD
     Route: 048
     Dates: start: 20161221
  22. LEVOCARNITINE HYDROCHLORIDE [Concomitant]
     Active Substance: LEVOCARNITINE HYDROCHLORIDE
     Indication: Product used for unknown indication
     Dosage: 15 MILLILITER, TID
     Route: 048
     Dates: start: 20170124, end: 20171102
  23. BANAN [Concomitant]
     Active Substance: CEFPODOXIME PROXETIL
     Indication: Disease complication
     Dosage: 70 MILLIGRAM, TID (BEFORE START OF CYSTADANE)
     Route: 048
     Dates: end: 20160624
  24. PRANLUKAST [Concomitant]
     Active Substance: PRANLUKAST
     Indication: Disease complication
     Dosage: 70 MILLIGRAM, BID
     Route: 048
     Dates: start: 20160924, end: 20160930
  25. CARBOCYSTEINE [Concomitant]
     Active Substance: CARBOCYSTEINE
     Indication: Disease complication
     Dosage: 300 MILLIGRAM, BID
     Route: 048
     Dates: start: 20160924, end: 20160930
  26. CARBOCYSTEINE [Concomitant]
     Active Substance: CARBOCYSTEINE
     Dosage: 300 MILLIGRAM, BID
     Route: 048
     Dates: start: 20161219, end: 20161230
  27. AMBROXOL HYDROCHLORIDE [Concomitant]
     Active Substance: AMBROXOL HYDROCHLORIDE
     Indication: Disease complication
     Dosage: 9 MILLIGRAM, TID
     Route: 048
     Dates: start: 20161219, end: 20161230

REACTIONS (2)
  - Pharyngitis [Recovered/Resolved]
  - Pharyngitis [Recovering/Resolving]

NARRATIVE: CASE EVENT DATE: 20170710
